FAERS Safety Report 20980756 (Version 1)
Quarter: 2022Q2

REPORT INFORMATION
  Report Type: Spontaneous
  Country: US (occurrence: US)
  Receive Date: 20220620
  Receipt Date: 20220620
  Transmission Date: 20220721
  Serious: No
  Sender: FDA-Public Use
  Company Number: US-BAYER-2022A084601

PATIENT

DRUGS (1)
  1. MIRALAX [Suspect]
     Active Substance: POLYETHYLENE GLYCOL 3350
     Dosage: 2 DF, HS

REACTIONS (4)
  - Inappropriate schedule of product administration [Unknown]
  - Product packaging difficult to open [Unknown]
  - Incorrect dose administered [Unknown]
  - Incorrect product administration duration [Unknown]
